FAERS Safety Report 9686276 (Version 1)
Quarter: 2013Q4

REPORT INFORMATION
  Report Type: Spontaneous
  Country: US (occurrence: US)
  Receive Date: 20131113
  Receipt Date: 20131113
  Transmission Date: 20140711
  Serious: Yes (Hospitalization)
  Sender: FDA-Public Use
  Company Number: US-ABBVIE-13P-163-1168484-00

PATIENT
  Age: 48 Year
  Sex: Female
  Weight: 83.99 kg

DRUGS (2)
  1. CREON [Suspect]
     Indication: PANCREATITIS CHRONIC
     Dosage: 5 CAPS WITH MEALS AND 3 CAPS WITH SNACKS
     Dates: end: 2011
  2. CREON [Suspect]
     Indication: CROHN^S DISEASE

REACTIONS (4)
  - Dehydration [Recovered/Resolved]
  - Pancreatitis acute [Recovered/Resolved]
  - Pain [Not Recovered/Not Resolved]
  - Diarrhoea [Not Recovered/Not Resolved]
